FAERS Safety Report 7135846-2 (Version None)
Quarter: 2010Q4

REPORT INFORMATION
  Report Type: 
  Country: None (occurrence: None)
  Receive Date: 20101203
  Receipt Date: 20101129
  Transmission Date: 20110411
  Serious: Yes (Other)
  Sender: FDA-Public Use
  Company Number: US-AMGEN-USASP2010006751

PATIENT

DRUGS (4)
  1. NPLATE [Suspect]
     Indication: IDIOPATHIC THROMBOCYTOPENIC PURPURA
  2. PREDNISONE [Suspect]
     Dosage: 1 MG, UNK
  3. PREDNISONE [Suspect]
     Dosage: 80 MG, QD
  4. PREDNISONE [Suspect]
     Dosage: 5 MG, UNK

REACTIONS (2)
  - ADVERSE DRUG REACTION [None]
  - PLATELET COUNT INCREASED [None]
